FAERS Safety Report 7654169-6 (Version None)
Quarter: 2011Q3

REPORT INFORMATION
  Report Type: 
  Country: None (occurrence: None)
  Receive Date: 20110803
  Receipt Date: 20110728
  Transmission Date: 20111222
  Serious: Yes (Hospitalization)
  Sender: FDA-Public Use
  Company Number: PHHY2011FR68505

PATIENT
  Sex: Male

DRUGS (5)
  1. NORVIR [Suspect]
     Indication: HIV INFECTION
     Dosage: 100 MG, QD
  2. TRUVADA [Suspect]
     Indication: HIV INFECTION
     Dosage: 1 DF, QD
  3. ATAZANAVIR [Suspect]
     Indication: HIV INFECTION
     Dosage: 300 MG, QD
  4. TRILEPTAL [Suspect]
     Indication: HIV INFECTION
     Dosage: 1 DF, BID
  5. ABILIFY [Suspect]
     Indication: HIV INFECTION
     Dosage: 5 MG, QD

REACTIONS (1)
  - RENAL COLIC [None]
